FAERS Safety Report 4728852-6 (Version None)
Quarter: 2005Q3

REPORT INFORMATION
  Report Type: 
  Country: None (occurrence: None)
  Receive Date: 20050729
  Receipt Date: 20050720
  Transmission Date: 20060218
  Serious: Yes (Hospitalization)
  Sender: FDA-Public Use
  Company Number: US-ROCHE-411405

PATIENT
  Age: 36 Year
  Sex: Female
  Weight: 68 kg

DRUGS (26)
  1. CELLCEPT [Suspect]
     Route: 065
     Dates: start: 20010131
  2. PROCRIT [Suspect]
     Indication: NEPHROGENIC ANAEMIA
     Route: 058
     Dates: start: 20011129
  3. PROCRIT [Suspect]
     Route: 058
     Dates: start: 20020118, end: 20020515
  4. PROCRIT [Suspect]
     Route: 058
     Dates: start: 20020521, end: 20020715
  5. PROCRIT [Suspect]
     Route: 058
     Dates: start: 20020708, end: 20020915
  6. PROCRIT [Suspect]
     Route: 058
     Dates: start: 20020909, end: 20021115
  7. PROCRIT [Suspect]
     Route: 058
     Dates: start: 20021119, end: 20030115
  8. PROCRIT [Suspect]
     Route: 058
     Dates: start: 20030121, end: 20030515
  9. PROCRIT [Suspect]
     Route: 058
     Dates: start: 20030528, end: 20031015
  10. PROCRIT [Suspect]
     Route: 058
     Dates: start: 20031001, end: 20031115
  11. PROCRIT [Suspect]
     Route: 058
     Dates: start: 20031121, end: 20031215
  12. PROCRIT [Suspect]
     Route: 058
     Dates: start: 20031215, end: 20040215
  13. PROCRIT [Suspect]
     Route: 058
     Dates: start: 20040216, end: 20040415
  14. PROCRIT [Suspect]
     Route: 058
     Dates: start: 20040406
  15. PROCRIT [Suspect]
     Route: 058
     Dates: start: 20040414, end: 20040515
  16. PROCRIT [Suspect]
     Route: 058
     Dates: start: 20040517, end: 20040715
  17. PROCRIT [Suspect]
     Route: 058
     Dates: start: 20040719, end: 20040915
  18. PROCRIT [Suspect]
     Route: 058
     Dates: start: 20040930, end: 20041015
  19. PROCRIT [Suspect]
     Route: 058
     Dates: start: 20041028, end: 20050115
  20. PROCRIT [Suspect]
     Route: 058
     Dates: start: 20050107, end: 20050315
  21. PROCRIT [Suspect]
     Route: 058
     Dates: start: 20050302, end: 20050324
  22. ARANESP [Suspect]
     Indication: NEPHROGENIC ANAEMIA
     Route: 065
     Dates: start: 20050324, end: 20050324
  23. ARANESP [Suspect]
     Route: 065
     Dates: start: 20050331
  24. PREDNISONE [Suspect]
     Route: 065
     Dates: start: 20050131
  25. TACROLIMUS [Suspect]
     Route: 065
     Dates: start: 20011215
  26. CYCLOSPORINE [Concomitant]
     Dates: start: 20010115, end: 20011215

REACTIONS (7)
  - APLASIA PURE RED CELL [None]
  - DRUG SPECIFIC ANTIBODY ABSENT [None]
  - HAEMOGLOBIN DECREASED [None]
  - RETICULOCYTE COUNT INCREASED [None]
  - THERAPEUTIC RESPONSE DECREASED [None]
  - TRANSPLANT REJECTION [None]
  - UTERINE CERVICAL SQUAMOUS METAPLASIA [None]
